FAERS Safety Report 7983208-8 (Version None)
Quarter: 2011Q4

REPORT INFORMATION
  Report Type: 
  Country: None (occurrence: None)
  Receive Date: 20111215
  Receipt Date: 20111206
  Transmission Date: 20120403
  Serious: Yes (Other)
  Sender: FDA-Public Use
  Company Number: US-ASTRAZENECA-2011SE59716

PATIENT
  Age: 67 Year
  Sex: Male
  Weight: 89.4 kg

DRUGS (13)
  1. SYNTHROID [Concomitant]
  2. ALBUTEROL [Concomitant]
  3. CLONAZEPAM [Concomitant]
  4. INHALERS [Concomitant]
  5. OXYGEN THERAPY [Concomitant]
  6. TOPROL-XL [Suspect]
     Route: 048
  7. METFORMIN HCL [Concomitant]
  8. SEROQUEL [Suspect]
     Route: 048
  9. EFFEXOR XR [Concomitant]
  10. INSULIN [Concomitant]
  11. NEBULIZERS [Concomitant]
  12. SEROQUEL [Suspect]
     Indication: DEPRESSION
     Route: 048
  13. CRESTOR [Suspect]
     Route: 048

REACTIONS (6)
  - CHRONIC OBSTRUCTIVE PULMONARY DISEASE [None]
  - MEMORY IMPAIRMENT [None]
  - CONFUSIONAL STATE [None]
  - INTRACRANIAL ANEURYSM [None]
  - GASTRIC DISORDER [None]
  - FALL [None]
